FAERS Safety Report 20921095 (Version 1)
Quarter: 2022Q2

REPORT INFORMATION
  Report Type: Report from Study
  Country: US (occurrence: US)
  Receive Date: 20220606
  Receipt Date: 20220606
  Transmission Date: 20220721
  Serious: No
  Sender: FDA-Public Use
  Company Number: US-INCYTE CORPORATION-2022IN004143

PATIENT

DRUGS (1)
  1. JAKAFI [Suspect]
     Active Substance: RUXOLITINIB
     Indication: Polycythaemia vera
     Dosage: 15 MILLIGRAM, BID
     Route: 065

REACTIONS (7)
  - Dysarthria [Unknown]
  - Dysphagia [Unknown]
  - Cognitive disorder [Unknown]
  - Neurological symptom [Unknown]
  - Lymphadenopathy [Unknown]
  - COVID-19 [Unknown]
  - Fatigue [Unknown]
